FAERS Safety Report 8562785-2 (Version None)
Quarter: 2012Q3

REPORT INFORMATION
  Report Type: 
  Country: None (occurrence: None)
  Receive Date: 20120802
  Receipt Date: 20120718
  Transmission Date: 20120928
  Serious: No
  Sender: FDA-Public Use
  Company Number: US-AMGEN-USASP2011066012

PATIENT
  Age: 51 Year
  Sex: Male

DRUGS (4)
  1. ASPIRIN [Concomitant]
  2. ENBREL [Suspect]
     Indication: PUSTULAR PSORIASIS
     Dosage: 50 MG, QWK
     Dates: start: 20060101
  3. FISH OIL [Concomitant]
  4. MULTI-VITAMINS [Concomitant]

REACTIONS (8)
  - BLOOD CHOLESTEROL INCREASED [None]
  - TOOTH INFECTION [None]
  - LOW DENSITY LIPOPROTEIN ABNORMAL [None]
  - BLOOD TRIGLYCERIDES ABNORMAL [None]
  - HIGH DENSITY LIPOPROTEIN ABNORMAL [None]
  - DRUG HYPERSENSITIVITY [None]
  - PUSTULAR PSORIASIS [None]
  - PSORIASIS [None]
